FAERS Safety Report 4981582-8 (Version None)
Quarter: 2006Q2

REPORT INFORMATION
  Report Type: 
  Country: None (occurrence: None)
  Receive Date: 20060420
  Receipt Date: 20060420
  Transmission Date: 20061013
  Serious: Yes (Hospitalization)
  Sender: FDA-Public Use
  Company Number: None

PATIENT
  Age: 84 Year
  Sex: Male
  Weight: 74.8435 kg

DRUGS (9)
  1. WARFARIN SODIUM [Suspect]
     Indication: ATRIAL FIBRILLATION
     Dosage: 3-5 MG DAILY PO AS DIRECTED
     Route: 048
     Dates: start: 20060324, end: 20060414
  2. ASPIRIN [Concomitant]
  3. CALCIUM/VIT D [Concomitant]
  4. METOPROLOL TARTRATE [Concomitant]
  5. NITROGLYCERIN SL [Concomitant]
  6. OMEPRAZOLE SA [Concomitant]
  7. SIMVASTATIN [Concomitant]
  8. TERAZOSIN HCL [Concomitant]
  9. ALBUTEROL SULFATE AND IPRATROPIUM BROMIDE [Concomitant]

REACTIONS (14)
  - ABDOMINAL DISTENSION [None]
  - BLOOD PRESSURE DIASTOLIC DECREASED [None]
  - CARDIAC MURMUR [None]
  - CHEST PAIN [None]
  - CONTUSION [None]
  - DRUG TOXICITY [None]
  - DYSPNOEA [None]
  - HEART RATE INCREASED [None]
  - INTERNATIONAL NORMALISED RATIO INCREASED [None]
  - OEDEMA PERIPHERAL [None]
  - ORTHOPNOEA [None]
  - PITTING OEDEMA [None]
  - RALES [None]
  - RESPIRATORY RATE INCREASED [None]
